FAERS Safety Report 12569158 (Version 1)
Quarter: 2016Q3

REPORT INFORMATION
  Report Type: Report from Study
  Country: US (occurrence: US)
  Receive Date: 20160719
  Receipt Date: 20160719
  Transmission Date: 20161109
  Serious: Yes (Hospitalization)
  Sender: FDA-Public Use
  Company Number: US-JNJFOC-20160712533

PATIENT
  Age: 17 Year
  Sex: Male
  Weight: 55.5 kg

DRUGS (5)
  1. HUMIRA [Concomitant]
     Active Substance: ADALIMUMAB
     Route: 065
  2. 5-ASA [Concomitant]
     Active Substance: MESALAMINE
     Route: 048
  3. REMICADE [Suspect]
     Active Substance: INFLIXIMAB
     Indication: CROHN^S DISEASE
     Route: 042
     Dates: start: 20070716, end: 20110425
  4. PREVACID [Concomitant]
     Active Substance: LANSOPRAZOLE
     Route: 065
  5. IRON [Concomitant]
     Active Substance: IRON
     Route: 065

REACTIONS (1)
  - Crohn^s disease [Recovered/Resolved]

NARRATIVE: CASE EVENT DATE: 20160606
